FAERS Safety Report 9632243 (Version 1)
Quarter: 2013Q4

REPORT INFORMATION
  Report Type: Spontaneous
  Country: DE (occurrence: DE)
  Receive Date: 20131018
  Receipt Date: 20131018
  Transmission Date: 20140711
  Serious: Yes (Hospitalization, Congenital Anomaly, Other)
  Sender: FDA-Public Use
  Company Number: DE-ELI_LILLY_AND_COMPANY-DE201310003394

PATIENT
  Sex: Female

DRUGS (3)
  1. FLUOXETINE HYDROCHLORIDE [Suspect]
     Indication: DEPRESSION
     Dosage: 1 DF, UNKNOWN
     Route: 064
  2. NIFEDIPINE [Concomitant]
     Indication: HYPERTENSION
     Route: 064
  3. NIFEDIPINE [Concomitant]
     Indication: ECLAMPSIA

REACTIONS (6)
  - Bronchopulmonary dysplasia [Unknown]
  - Premature baby [Recovered/Resolved]
  - Congenital pulmonary valve disorder [Recovered/Resolved]
  - Patent ductus arteriosus [Recovered/Resolved]
  - Atrial septal defect [Recovering/Resolving]
  - Foetal exposure during pregnancy [Recovered/Resolved]
